FAERS Safety Report 7249990-2 (Version None)
Quarter: 2011Q1

REPORT INFORMATION
  Report Type: 
  Country: None (occurrence: None)
  Receive Date: 20110128
  Receipt Date: 20110119
  Transmission Date: 20110831
  Serious: Yes (Other)
  Sender: FDA-Public Use
  Company Number: US-SANOFI-AVENTIS-2011SA003867

PATIENT
  Age: 74 Year
  Sex: Female

DRUGS (10)
  1. DIOVAN HCT [Concomitant]
  2. VITAMIN D [Concomitant]
  3. AMIODARONE [Concomitant]
     Indication: ATRIAL FIBRILLATION
     Dates: end: 20100501
  4. ZOLOFT [Concomitant]
  5. MULTAQ [Suspect]
     Indication: ATRIAL FIBRILLATION
     Route: 048
     Dates: start: 20100501
  6. ALISKIREN [Concomitant]
  7. ALBUTEROL [Concomitant]
  8. VERAPAMIL [Concomitant]
  9. BLINDED THERAPY [Concomitant]
  10. ZOCOR [Concomitant]

REACTIONS (3)
  - FATIGUE [None]
  - ATRIAL FIBRILLATION [None]
  - RENAL FAILURE [None]
